FAERS Safety Report 21261639 (Version 1)
Quarter: 2022Q3

REPORT INFORMATION
  Report Type: Spontaneous
  Country: SG (occurrence: SG)
  Receive Date: 20220827
  Receipt Date: 20220827
  Transmission Date: 20221027
  Serious: Yes (Other)
  Sender: FDA-Public Use
  Company Number: SG-NOVARTISPH-NVSC2022SG188862

PATIENT
  Age: 68 Year
  Sex: Female

DRUGS (7)
  1. ALPELISIB [Suspect]
     Active Substance: ALPELISIB
     Indication: Breast cancer metastatic
     Dosage: 250 MG (CYCLE 1)
     Route: 065
     Dates: start: 20200612
  2. ALPELISIB [Suspect]
     Active Substance: ALPELISIB
     Dosage: 200 MG
     Route: 065
     Dates: start: 20200618
  3. FULVESTRANT [Suspect]
     Active Substance: FULVESTRANT
     Indication: Breast cancer metastatic
     Dosage: UNK (CYCLE 1)
     Route: 065
     Dates: start: 20200612
  4. IRBESARTAN [Suspect]
     Active Substance: IRBESARTAN
     Indication: Chronic kidney disease
     Dosage: UNK
     Route: 065
  5. METFORMIN [Concomitant]
     Active Substance: METFORMIN HYDROCHLORIDE
     Indication: Diabetes mellitus
     Dosage: 850 MG, BID
     Route: 065
     Dates: start: 20200612
  6. METFORMIN [Concomitant]
     Active Substance: METFORMIN HYDROCHLORIDE
     Dosage: 850 MG, QD (OM)
     Route: 065
     Dates: start: 20200616
  7. GLIPIZIDE [Concomitant]
     Active Substance: GLIPIZIDE
     Indication: Diabetes mellitus
     Dosage: 5 MG, BID
     Route: 065
     Dates: start: 20200612

REACTIONS (5)
  - Metastases to liver [Unknown]
  - Proteinuria [Unknown]
  - Hypervolaemia [Unknown]
  - Blood glucose increased [Unknown]
  - Therapeutic response decreased [Unknown]

NARRATIVE: CASE EVENT DATE: 20200616
